FAERS Safety Report 7428354-2 (Version None)
Quarter: 2011Q2

REPORT INFORMATION
  Report Type: 
  Country: None (occurrence: None)
  Receive Date: 20110412
  Receipt Date: 20110405
  Transmission Date: 20111010
  Serious: Yes (Other)
  Sender: FDA-Public Use
  Company Number: 201102023

PATIENT
  Age: 73 Year
  Sex: Male

DRUGS (6)
  1. K+ (POTASSIUM) [Concomitant]
  2. LOVASTATIN [Concomitant]
  3. AMILODIPINE (AMLODIPINE) [Concomitant]
  4. LASIX [Concomitant]
  5. XIAFLEX [Suspect]
     Indication: MUSCLE CONTRACTURE
     Dosage: 1 IN 1 D, INTRALESIONAL; 1 IN 1 D, INTRALESIONAL
     Route: 026
     Dates: start: 20110203, end: 20110203
  6. XIAFLEX [Suspect]
     Indication: MUSCLE CONTRACTURE
     Dosage: 1 IN 1 D, INTRALESIONAL; 1 IN 1 D, INTRALESIONAL
     Route: 026
     Dates: start: 20100503, end: 20100503

REACTIONS (2)
  - SKIN GRAFT [None]
  - LACERATION [None]
